FAERS Safety Report 4329923-9 (Version None)
Quarter: 2004Q1

REPORT INFORMATION
  Report Type: 
  Country: None (occurrence: None)
  Receive Date: 20040329
  Receipt Date: 20040316
  Transmission Date: 20041129
  Serious: Yes (Hospitalization)
  Sender: FDA-Public Use
  Company Number: EMADSS2002004437

PATIENT
  Age: 71 Year
  Sex: Female
  Weight: 58 kg

DRUGS (9)
  1. GALANTAMINE (GALANTAMINE) TABLETS [Suspect]
     Indication: DEMENTIA
     Dosage: 4 MG, 2 IN 1 DAY, ORAL
     Route: 048
     Dates: start: 20020716, end: 20020718
  2. ACETYLSALICYLIC ACID SRT [Concomitant]
  3. ATENOLOL [Concomitant]
  4. SIMVASTATIN [Concomitant]
  5. ALENDRONATE (ALENDRONATE SODIUM) [Concomitant]
  6. FLUVOXAMINE MALEATE [Concomitant]
  7. OXYBUTYNIN [Concomitant]
  8. ALPHA-TOCOPHEROLACETATE (DL-ALPHA TOCOPHERYL ACETATE) [Concomitant]
  9. ALFACALCIDOL (ALFACALCIDOL) [Concomitant]

REACTIONS (5)
  - ASTHENIA [None]
  - GASTRIC ULCER [None]
  - HAEMATEMESIS [None]
  - HIATUS HERNIA [None]
  - OESOPHAGITIS [None]
